FAERS Safety Report 5312577-2 (Version None)
Quarter: 2007Q2

REPORT INFORMATION
  Report Type: 
  Country: None (occurrence: None)
  Receive Date: 20070430
  Receipt Date: 20070110
  Transmission Date: 20071010
  Serious: No
  Sender: FDA-Public Use
  Company Number: 2007UW00528

PATIENT
  Age: 77 Year
  Sex: Female
  Weight: 68 kg

DRUGS (6)
  1. NEXIUM [Suspect]
     Indication: GASTROOESOPHAGEAL REFLUX DISEASE
     Route: 048
  2. NEXIUM [Suspect]
     Indication: HIATUS HERNIA
     Route: 048
  3. AVAPRO [Concomitant]
  4. NORVASC [Concomitant]
  5. ULTRAM [Concomitant]
  6. HYDROCODONE [Concomitant]

REACTIONS (2)
  - BACK PAIN [None]
  - MULTIPLE SCLEROSIS [None]
